FAERS Safety Report 4587561-7 (Version None)
Quarter: 2005Q1

REPORT INFORMATION
  Report Type: 
  Country: None (occurrence: None)
  Receive Date: 20050215
  Receipt Date: 20020701
  Transmission Date: 20050727
  Serious: No
  Sender: FDA-Public Use
  Company Number: C02-T-034_06

PATIENT

DRUGS (1)
  1. CARISOPRODOL [Suspect]

REACTIONS (2)
  - PHARMACEUTICAL PRODUCT COMPLAINT [None]
  - THERAPEUTIC RESPONSE DECREASED [None]
